FAERS Safety Report 5490748-2 (Version None)
Quarter: 2007Q4

REPORT INFORMATION
  Report Type: 
  Country: None (occurrence: None)
  Receive Date: 20071019
  Receipt Date: 20071015
  Transmission Date: 20080405
  Serious: Yes (Life-Threatening, Disabling)
  Sender: FDA-Public Use
  Company Number: JP-ASTRAZENECA-2007AP06542

PATIENT
  Age: 30 Year
  Sex: Male

DRUGS (2)
  1. DIPRIVAN [Suspect]
     Dosage: DOSE UNKNOWN
     Route: 042
     Dates: start: 20040401, end: 20040401
  2. XYLOCAINE W/ EPINEPHRINE [Suspect]
     Dosage: DOSE UNKNOWN
     Dates: start: 20040401, end: 20040401

REACTIONS (3)
  - BRADYCARDIA [None]
  - HYPOXIC ENCEPHALOPATHY [None]
  - SHOCK [None]
